FAERS Safety Report 10491958 (Version 1)
Quarter: 2014Q4

REPORT INFORMATION
  Report Type: Spontaneous
  Country: US (occurrence: US)
  Receive Date: 20141002
  Receipt Date: 20141002
  Transmission Date: 20150528
  Serious: No
  Sender: FDA-Public Use
  Company Number: US-GLAXOSMITHKLINE-A1062884A

PATIENT
  Sex: Female

DRUGS (4)
  1. ZETIA [Concomitant]
     Active Substance: EZETIMIBE
  2. ADVAIR HFA [Suspect]
     Active Substance: FLUTICASONE PROPIONATE\SALMETEROL XINAFOATE
     Indication: ASTHMA
     Dosage: 1PUFF PER DAY
     Route: 055
     Dates: start: 2000
  3. LANSOPRAZOLE. [Concomitant]
     Active Substance: LANSOPRAZOLE
  4. FEMRING [Concomitant]
     Active Substance: ESTRADIOL ACETATE

REACTIONS (6)
  - Off label use [Unknown]
  - Pharyngeal disorder [Unknown]
  - Sinusitis [Unknown]
  - Asthma [Unknown]
  - Bronchitis [Unknown]
  - Bronchospasm [Unknown]
